FAERS Safety Report 6180778-X (Version None)
Quarter: 2009Q2

REPORT INFORMATION
  Report Type: 
  Country: None (occurrence: None)
  Receive Date: 20090504
  Receipt Date: 20090427
  Transmission Date: 20091009
  Serious: Yes (Other)
  Sender: FDA-Public Use
  Company Number: 2009SP009032

PATIENT
  Age: 48 Year
  Sex: Male

DRUGS (2)
  1. RIBAVIRIN [Suspect]
     Indication: HEPATITIS C
     Dosage: PO
     Route: 048
  2. PEGASYS [Suspect]
     Indication: HEPATITIS C

REACTIONS (5)
  - ASTHENIA [None]
  - DISEASE RECURRENCE [None]
  - HEPATITIS C [None]
  - MALAISE [None]
  - PSYCHOTIC DISORDER [None]
